FAERS Safety Report 9853271 (Version 1)
Quarter: 2014Q1

REPORT INFORMATION
  Report Type: Spontaneous
  Country: CA (occurrence: CA)
  Receive Date: 20140129
  Receipt Date: 20140129
  Transmission Date: 20141002
  Serious: Yes (Death, Hospitalization)
  Sender: FDA-Public Use
  Company Number: CA-AMGEN-CANSP2014006204

PATIENT
  Age: 70 Year
  Sex: Male

DRUGS (2)
  1. NEUPOGEN [Suspect]
     Indication: NEOPLASM MALIGNANT
     Dosage: 1ML/300MCG
     Route: 065
     Dates: start: 20130311
  2. XGEVA [Suspect]
     Indication: PRODUCT USED FOR UNKNOWN INDICATION
     Dosage: UNK
     Route: 065

REACTIONS (1)
  - Neoplasm malignant [Fatal]
